FAERS Safety Report 24358788 (Version 1)
Quarter: 2024Q3

REPORT INFORMATION
  Report Type: Report from Study
  Country: IE (occurrence: IE)
  Receive Date: 20240924
  Receipt Date: 20240924
  Transmission Date: 20241016
  Serious: Yes (Other)
  Sender: PFIZER
  Company Number: IE-PFIZER INC-PV202400123400

PATIENT
  Sex: Female

DRUGS (2)
  1. RITLECITINIB [Suspect]
     Active Substance: RITLECITINIB
     Indication: Alopecia areata
     Dosage: 50 MG, 1X/DAY
     Dates: start: 20240117
  2. PREDNISOLONE [Concomitant]
     Active Substance: PREDNISOLONE
     Dosage: 7.5 MG, DAILY, SLOWLY WEAN LONG-TERM

REACTIONS (3)
  - Upper respiratory tract infection [Unknown]
  - Haemoglobin increased [Unknown]
  - Neutrophil count abnormal [Unknown]
